FAERS Safety Report 24947728 (Version 1)
Quarter: 2025Q1

REPORT INFORMATION
  Report Type: Spontaneous
  Country: CN (occurrence: CN)
  Receive Date: 20250210
  Receipt Date: 20250210
  Transmission Date: 20250409
  Serious: Yes (Other)
  Sender: TOLMAR
  Company Number: CN-TOLMAR, INC.-25CN056355

PATIENT
  Age: 74 Year
  Sex: Male

DRUGS (11)
  1. LEUPROLIDE ACETATE [Suspect]
     Active Substance: LEUPROLIDE ACETATE
     Indication: Prostate cancer
  2. BICALUTAMIDE [Suspect]
     Active Substance: BICALUTAMIDE
     Indication: Product used for unknown indication
  3. ABIRATERONE;PREDNISONE [Concomitant]
     Indication: Prostatic specific antigen increased
  4. ENZALUTAMIDE [Concomitant]
     Active Substance: ENZALUTAMIDE
     Indication: Product used for unknown indication
  5. ENZALUTAMIDE [Concomitant]
     Active Substance: ENZALUTAMIDE
  6. ENZALUTAMIDE [Concomitant]
     Active Substance: ENZALUTAMIDE
  7. ENZALUTAMIDE [Concomitant]
     Active Substance: ENZALUTAMIDE
  8. ENZALUTAMIDE [Concomitant]
     Active Substance: ENZALUTAMIDE
  9. FOSFOMYCIN [Concomitant]
     Active Substance: FOSFOMYCIN
     Indication: Priapism
     Dosage: 4 GRAM, Q 8 HR
     Route: 042
  10. CELECOXIB [Concomitant]
     Active Substance: CELECOXIB
     Indication: Penile pain
  11. CELECOXIB [Concomitant]
     Active Substance: CELECOXIB

REACTIONS (4)
  - Malignant neoplasm progression [Unknown]
  - Metastases to lung [Unknown]
  - Metastases to penis [Unknown]
  - Metastases to lymph nodes [Unknown]
